FAERS Safety Report 13430898 (Version 1)
Quarter: 2017Q2

REPORT INFORMATION
  Report Type: Spontaneous
  Country: JP (occurrence: JP)
  Receive Date: 20170412
  Receipt Date: 20170412
  Transmission Date: 20170830
  Serious: Yes (Death)
  Sender: FDA-Public Use
  Company Number: JP-PFIZER INC-2017152545

PATIENT
  Age: 76 Year
  Sex: Female

DRUGS (1)
  1. LYRICA [Suspect]
     Active Substance: PREGABALIN
     Dosage: 125 MG, DAILY (MORNING: 50 MG/ EVENING 75 MG)
     Route: 048

REACTIONS (3)
  - Weight increased [Unknown]
  - Disease progression [Fatal]
  - Colon cancer [Fatal]
